FAERS Safety Report 5997513-8 (Version None)
Quarter: 2008Q4

REPORT INFORMATION
  Report Type: 
  Country: None (occurrence: None)
  Receive Date: 20081211
  Receipt Date: 20081201
  Transmission Date: 20090506
  Serious: Yes (Disabling, Other)
  Sender: FDA-Public Use
  Company Number: 002#1#2008-00694

PATIENT
  Age: 65 Year
  Sex: Female
  Weight: 45 kg

DRUGS (5)
  1. NEUPRO [Suspect]
     Indication: PARKINSON'S DISEASE
     Dosage: 4 MG/24H, 1 IN 1 D, TRANSDERMAL
     Route: 062
     Dates: start: 20080101, end: 20080601
  2. NEUPRO [Suspect]
     Indication: PARKINSON'S DISEASE
     Dosage: 4 MG/24H, 1 IN 1 D, TRANSDERMAL
     Route: 062
     Dates: start: 20080101, end: 20080601
  3. SYNDOPA [Concomitant]
  4. PSEUDONE [Concomitant]
  5. ATENOLOL [Concomitant]

REACTIONS (3)
  - ACCELERATED HYPERTENSION [None]
  - DIALYSIS [None]
  - RENAL FAILURE [None]
